FAERS Safety Report 4739466-6 (Version None)
Quarter: 2005Q3

REPORT INFORMATION
  Report Type: 
  Country: None (occurrence: None)
  Receive Date: 20050810
  Receipt Date: 20050324
  Transmission Date: 20060218
  Serious: No
  Sender: FDA-Public Use
  Company Number: US-GLAXOSMITHKLINE-A0551138A

PATIENT
  Age: 68 Year
  Sex: Female

DRUGS (10)
  1. PAXIL [Suspect]
     Dosage: 20MG PER DAY
     Route: 048
     Dates: start: 20040101
  2. LEXAPRO [Concomitant]
  3. THIAMINE [Concomitant]
  4. TESTOSTERONE [Concomitant]
  5. PROGESTERONE [Concomitant]
  6. ESTROGEN [Concomitant]
  7. VITAMIN [Concomitant]
  8. LISINOPRIL [Concomitant]
  9. RICE [Concomitant]
  10. FOLIC ACID [Concomitant]

REACTIONS (3)
  - DIZZINESS [None]
  - HEADACHE [None]
  - TINNITUS [None]
